FAERS Safety Report 4775985-4 (Version None)
Quarter: 2005Q3

REPORT INFORMATION
  Report Type: 
  Country: None (occurrence: None)
  Receive Date: 20050922
  Receipt Date: 20050915
  Transmission Date: 20060218
  Serious: Yes (Life-Threatening, Hospitalization)
  Sender: FDA-Public Use
  Company Number: FR-SANOFI-SYNTHELABO-A02200502432

PATIENT
  Age: 39 Year
  Sex: Female

DRUGS (6)
  1. PLAQUENIL [Suspect]
     Indication: DRUG USE FOR UNKNOWN INDICATION
     Dosage: 12 G
     Route: 048
     Dates: start: 20050622
  2. LEXOMIL [Concomitant]
     Dosage: 180 MG
     Route: 048
     Dates: start: 20050622
  3. STILNOX [Concomitant]
     Dosage: 300 MG
     Route: 048
     Dates: start: 20050622
  4. VISCERALGINE [Concomitant]
     Dosage: 1 G
     Route: 048
     Dates: start: 20050622
  5. MYOLASTAN [Concomitant]
     Dosage: 1 GR
     Route: 048
     Dates: start: 20050622
  6. DEROXAT [Concomitant]
     Dosage: UNK
     Route: 048
     Dates: start: 20050622

REACTIONS (11)
  - BLOOD PRESSURE DECREASED [None]
  - CARDIAC DISORDER [None]
  - CARDIAC FAILURE [None]
  - CIRCULATORY COLLAPSE [None]
  - HYPOKALAEMIA [None]
  - HYPOTONIA [None]
  - INTENTIONAL MISUSE [None]
  - METABOLIC ACIDOSIS [None]
  - OVERDOSE [None]
  - PULMONARY HYPERTENSION [None]
  - VENTRICULAR FIBRILLATION [None]
